FAERS Safety Report 6222189-4 (Version None)
Quarter: 2009Q2

REPORT INFORMATION
  Report Type: 
  Country: None (occurrence: None)
  Receive Date: 20090611
  Receipt Date: 20090608
  Transmission Date: 20091009
  Serious: Yes (Hospitalization, Other)
  Sender: FDA-Public Use
  Company Number: BR-BAYER-200816087LA

PATIENT
  Age: 30 Year
  Sex: Female

DRUGS (1)
  1. BETAFERON [Suspect]
     Indication: MULTIPLE SCLEROSIS
     Dosage: TOTAL DAILY DOSE: 8 MIU
     Route: 058
     Dates: start: 20070815, end: 20080901

REACTIONS (9)
  - AMENORRHOEA [None]
  - ANOREXIA [None]
  - ANTEPARTUM HAEMORRHAGE [None]
  - CONSTIPATION [None]
  - MENSTRUATION DELAYED [None]
  - NO ADVERSE EVENT [None]
  - PREMATURE LABOUR [None]
  - PREMATURE RUPTURE OF MEMBRANES [None]
  - URINARY TRACT INFECTION [None]
